FAERS Safety Report 9907927 (Version 1)
Quarter: 2014Q1

REPORT INFORMATION
  Report Type: Spontaneous
  Country: US (occurrence: US)
  Receive Date: 20140219
  Receipt Date: 20140219
  Transmission Date: 20141002
  Serious: No
  Sender: FDA-Public Use
  Company Number: US-BIOGENIDEC-2014BI015683

PATIENT
  Age: 48 Year
  Sex: Female
  Weight: 75 kg

DRUGS (16)
  1. TECFIDERA [Suspect]
     Indication: MULTIPLE SCLEROSIS
     Dates: start: 201308
  2. TECFIDERA [Suspect]
     Indication: MULTIPLE SCLEROSIS
     Route: 048
     Dates: end: 20140206
  3. GABAPENTIN [Concomitant]
     Route: 048
     Dates: start: 20131016
  4. TIZANIDINE HCL [Concomitant]
     Indication: MUSCLE SPASMS
     Route: 048
     Dates: start: 20131016
  5. PROMETHAZINE [Concomitant]
     Route: 048
     Dates: start: 20131003
  6. FLEXERIL [Concomitant]
     Route: 048
     Dates: start: 20130829
  7. ASPIRIN [Concomitant]
     Route: 048
  8. FOLIC ACID [Concomitant]
     Route: 048
  9. MELATONIN [Concomitant]
     Route: 048
  10. ABILIFY [Concomitant]
     Route: 048
  11. ALPRAZOLAM [Concomitant]
     Route: 048
  12. OXYCODONE HCL [Concomitant]
     Route: 048
  13. ALENDRONATE SODIUM [Concomitant]
     Route: 048
     Dates: start: 20130829
  14. IBUPROFEN [Concomitant]
     Route: 048
     Dates: start: 20130827
  15. PERCOCET [Concomitant]
     Route: 048
     Dates: start: 20130827
  16. VESICARE [Concomitant]
     Route: 048
     Dates: start: 20130808

REACTIONS (4)
  - Balance disorder [Unknown]
  - Hypoaesthesia [Unknown]
  - Paraesthesia [Unknown]
  - Multiple sclerosis relapse [Unknown]
